FAERS Safety Report 11417137 (Version 4)
Quarter: 2016Q1

REPORT INFORMATION
  Report Type: Spontaneous
  Country: TW (occurrence: TW)
  Receive Date: 20150825
  Receipt Date: 20160317
  Transmission Date: 20160525
  Serious: Yes (Death, Other)
  Sender: FDA-Public Use
  Company Number: TW-BAYER-2015-400683

PATIENT
  Age: 62 Year
  Sex: Male

DRUGS (2)
  1. NEXAVAR [Suspect]
     Active Substance: SORAFENIB
     Indication: HEPATOCELLULAR CARCINOMA
     Dosage: UNK
     Route: 048
  2. STIVARGA [Suspect]
     Active Substance: REGORAFENIB
     Indication: HEPATOCELLULAR CARCINOMA
     Dosage: UNK
     Route: 048
     Dates: start: 201506, end: 201507

REACTIONS (15)
  - Hepatocellular carcinoma [None]
  - Urinary incontinence [None]
  - Drug ineffective [None]
  - Death [Fatal]
  - Dry skin [None]
  - Diarrhoea [None]
  - Off label use [None]
  - Anal incontinence [None]
  - Fatigue [None]
  - Liver function test increased [None]
  - Abasia [None]
  - Decreased appetite [None]
  - Metastases to lung [None]
  - Skin fissures [None]
  - Tumour marker increased [None]

NARRATIVE: CASE EVENT DATE: 20150825
